FAERS Safety Report 5103423-0 (Version None)
Quarter: 2006Q3

REPORT INFORMATION
  Report Type: 
  Country: None (occurrence: None)
  Receive Date: 20060913
  Receipt Date: 20060908
  Transmission Date: 20061208
  Serious: Yes (Hospitalization)
  Sender: FDA-Public Use
  Company Number: US-BRISTOL-MYERS SQUIBB COMPANY-13503438

PATIENT
  Age: 71 Year
  Sex: Female
  Weight: 120 kg

DRUGS (3)
  1. ERBITUX [Suspect]
     Indication: OESOPHAGEAL ADENOCARCINOMA
     Route: 042
     Dates: start: 20060829, end: 20060829
  2. CISPLATIN [Suspect]
     Indication: OESOPHAGEAL ADENOCARCINOMA
     Route: 042
     Dates: start: 20060829, end: 20060829
  3. IRINOTECAN HCL [Suspect]
     Indication: OESOPHAGEAL ADENOCARCINOMA
     Route: 042
     Dates: start: 20060829, end: 20060829

REACTIONS (8)
  - ATELECTASIS [None]
  - BRAIN HYPOXIA [None]
  - CAROTID ARTERY STENOSIS [None]
  - CEREBRAL ISCHAEMIA [None]
  - CEREBROVASCULAR ACCIDENT [None]
  - HYPOTENSION [None]
  - SUBCLAVIAN ARTERY STENOSIS [None]
  - TRANSIENT ISCHAEMIC ATTACK [None]
